FAERS Safety Report 14267748 (Version 1)
Quarter: 2017Q4

REPORT INFORMATION
  Report Type: Spontaneous
  Country: US (occurrence: US)
  Receive Date: 20171211
  Receipt Date: 20171211
  Transmission Date: 20180321
  Serious: No
  Sender: FDA-Public Use
  Company Number: US-ROCHE-1919003

PATIENT
  Sex: Male

DRUGS (1)
  1. LUCENTIS [Suspect]
     Active Substance: RANIBIZUMAB
     Indication: MACULAR DEGENERATION
     Dosage: USE AS DIRECTED BY PHYSICIAN?0.5MG / 0.05ML
     Route: 065
     Dates: start: 20170127

REACTIONS (1)
  - Drug ineffective [Unknown]
